FAERS Safety Report 7337702-3 (Version None)
Quarter: 2011Q1

REPORT INFORMATION
  Report Type: 
  Country: None (occurrence: None)
  Receive Date: 20110303
  Receipt Date: 20110303
  Transmission Date: 20110831
  Serious: Yes (Hospitalization)
  Sender: FDA-Public Use
  Company Number: None

PATIENT
  Sex: Female
  Weight: 112.9457 kg

DRUGS (1)
  1. HUMATROPE [Suspect]
     Dosage: 0.2 MG QD SQ
     Route: 058

REACTIONS (1)
  - KNEE ARTHROPLASTY [None]
